FAERS Safety Report 7079166-3 (Version None)
Quarter: 2010Q4

REPORT INFORMATION
  Report Type: 
  Country: None (occurrence: None)
  Receive Date: 20101102
  Receipt Date: 20101026
  Transmission Date: 20110411
  Serious: Yes (Other)
  Sender: FDA-Public Use
  Company Number: A0889952A

PATIENT
  Sex: Female

DRUGS (3)
  1. LAMICTAL [Suspect]
     Route: 048
  2. DOPAMINERGIC AGONIST [Suspect]
  3. UNSPECIFIED MEDICATION [Suspect]

REACTIONS (1)
  - HALLUCINATION [None]
